FAERS Safety Report 9632823 (Version 1)
Quarter: 2013Q4

REPORT INFORMATION
  Report Type: Spontaneous
  Country: PL (occurrence: PL)
  Receive Date: 20131018
  Receipt Date: 20131018
  Transmission Date: 20140711
  Serious: Yes (Other)
  Sender: FDA-Public Use
  Company Number: PL-ROCHE-1287676

PATIENT
  Age: 49 Year
  Sex: Male

DRUGS (8)
  1. RITUXIMAB [Suspect]
     Indication: B-CELL LYMPHOMA
     Route: 065
     Dates: start: 200509, end: 200601
  2. RITUXIMAB [Suspect]
     Route: 065
     Dates: start: 200608
  3. RITUXIMAB [Suspect]
     Route: 065
     Dates: start: 201005, end: 201006
  4. RITUXIMAB [Suspect]
     Route: 065
     Dates: start: 201006, end: 201205
  5. CYCLOPHOSPHAMIDE [Concomitant]
     Route: 065
     Dates: start: 200509, end: 200601
  6. DOXORUBICIN HYDROCHLORIDE [Concomitant]
     Route: 065
     Dates: start: 200509, end: 200601
  7. VINCRISTINE [Concomitant]
     Route: 065
     Dates: start: 200509, end: 200601
  8. PREDNISOLONE [Concomitant]
     Route: 065
     Dates: start: 200509, end: 200601

REACTIONS (8)
  - Hepatic cirrhosis [Unknown]
  - Myocardial infarction [Unknown]
  - Hepatocellular injury [Unknown]
  - Thrombocytopenia [Unknown]
  - Pyrexia [Unknown]
  - Weight decreased [Unknown]
  - Bone pain [Unknown]
  - Anal abscess [Unknown]
